FAERS Safety Report 6775350-4 (Version None)
Quarter: 2010Q2

REPORT INFORMATION
  Report Type: 
  Country: None (occurrence: None)
  Receive Date: 20100617
  Receipt Date: 20100604
  Transmission Date: 20101027
  Serious: No
  Sender: FDA-Public Use
  Company Number: US-ELI_LILLY_AND_COMPANY-US201006002938

PATIENT
  Sex: Male
  Weight: 90.703 kg

DRUGS (15)
  1. ADCIRCA [Suspect]
     Dosage: 1 D/F, DAILY (1/D)
     Route: 048
  2. TREPROSTINIL [Concomitant]
     Indication: PULMONARY HYPERTENSION
     Dosage: UNK, UNK
     Route: 055
     Dates: start: 20100513
  3. TREPROSTINIL [Concomitant]
     Dosage: 3 D/F, 4/D
     Route: 055
  4. TREPROSTINIL [Concomitant]
     Dosage: 4 D/F, 4/D
     Route: 055
  5. OXYGEN [Concomitant]
     Route: 055
  6. PLAQUENIL /00072601/ [Concomitant]
     Dosage: 200 MG, DAILY (1/D)
     Route: 048
  7. LASIX [Concomitant]
     Dosage: 20 MG, DAILY (1/D)
     Route: 048
  8. NEURONTIN [Concomitant]
     Dosage: 300 MG, 3/D
     Route: 048
  9. CARVEDILOL [Concomitant]
     Dosage: 12.5 MG, 2/D
     Route: 048
  10. SPIRONOLACTONE [Concomitant]
     Dosage: 50 MG, DAILY (1/D)
     Route: 048
  11. COUMADIN [Concomitant]
     Dosage: 5 MG, DAILY (1/D)
     Route: 048
  12. METFORMIN HCL [Concomitant]
     Dosage: 500 MG, 2/D
     Route: 048
  13. SIMVASTATIN [Concomitant]
     Dosage: 20 MG, DAILY (1/D)
     Route: 048
  14. GLIMEPIRIDE [Concomitant]
     Dosage: 2 MG, DAILY (1/D)
     Route: 048
  15. PERSANTINE [Concomitant]
     Dosage: 50 MG, 3/D
     Route: 048

REACTIONS (1)
  - VISION BLURRED [None]
